FAERS Safety Report 13341698 (Version 2)
Quarter: 2018Q2

REPORT INFORMATION
  Report Type: Spontaneous
  Country: US (occurrence: US)
  Receive Date: 20170316
  Receipt Date: 20180403
  Transmission Date: 20180711
  Serious: No
  Sender: FDA-Public Use
  Company Number: US-ROCHE-1867512

PATIENT
  Age: 50 Year
  Sex: Male
  Weight: 67.42 kg

DRUGS (1)
  1. ERIVEDGE [Suspect]
     Active Substance: VISMODEGIB
     Indication: BASAL CELL CARCINOMA
     Route: 048
     Dates: start: 20161121

REACTIONS (10)
  - Bone pain [Unknown]
  - Nausea [Unknown]
  - Decreased appetite [Unknown]
  - Arthralgia [Unknown]
  - Headache [Unknown]
  - Ageusia [Unknown]
  - Ocular discomfort [Unknown]
  - Somnolence [Unknown]
  - Muscle fatigue [Unknown]
  - Blister [Unknown]

NARRATIVE: CASE EVENT DATE: 20170526
